FAERS Safety Report 21259670 (Version 7)
Quarter: 2022Q4

REPORT INFORMATION
  Report Type: Report from Study
  Country: US (occurrence: US)
  Receive Date: 20220826
  Receipt Date: 20221221
  Transmission Date: 20230113
  Serious: Yes (Other)
  Sender: FDA-Public Use
  Company Number: US-NOVARTISTESTPH-NVSC2022US188297

PATIENT
  Age: 45 Year
  Sex: Female

DRUGS (4)
  1. KESIMPTA [Suspect]
     Active Substance: OFATUMUMAB
     Indication: Relapsing multiple sclerosis
     Dosage: 20 MG (FIRST LOADING DOSE)
     Route: 058
     Dates: start: 20220810
  2. KESIMPTA [Suspect]
     Active Substance: OFATUMUMAB
     Dosage: 20 MG (SECOND LOADING DOSE)
     Route: 058
     Dates: start: 20220817
  3. KESIMPTA [Suspect]
     Active Substance: OFATUMUMAB
     Dosage: 20 MG (THIRD LOADING DOSE)
     Route: 058
  4. KESIMPTA [Suspect]
     Active Substance: OFATUMUMAB
     Dosage: 20 MG, QMO
     Route: 058
     Dates: start: 20220907

REACTIONS (16)
  - Loss of consciousness [Unknown]
  - Tremor [Unknown]
  - Pain [Recovered/Resolved]
  - Migraine [Recovered/Resolved]
  - Dizziness [Unknown]
  - Hyperacusis [Unknown]
  - Pain in extremity [Unknown]
  - Arthralgia [Unknown]
  - Depression [Unknown]
  - Nausea [Unknown]
  - Pyrexia [Unknown]
  - Headache [Unknown]
  - Chills [Unknown]
  - Injection site pain [Unknown]
  - Eating disorder [Unknown]
  - Gait disturbance [Unknown]

NARRATIVE: CASE EVENT DATE: 20220902
